FAERS Safety Report 20092289 (Version 1)
Quarter: 2021Q4

REPORT INFORMATION
  Report Type: Spontaneous
  Country: HR (occurrence: HR)
  Receive Date: 20211119
  Receipt Date: 20211119
  Transmission Date: 20220303
  Serious: Yes (Other)
  Sender: FDA-Public Use
  Company Number: None

PATIENT
  Sex: Female

DRUGS (5)
  1. PANTOPRAZOLE SODIUM [Suspect]
     Active Substance: PANTOPRAZOLE SODIUM
     Dosage: 560 MG
     Route: 048
     Dates: start: 20210607, end: 20210607
  2. RAMIPRIL [Suspect]
     Active Substance: RAMIPRIL
     Dosage: 30 MG
     Route: 048
     Dates: start: 20210607, end: 20210607
  3. BACLOFEN [Suspect]
     Active Substance: BACLOFEN
     Dosage: 200 MG
     Route: 048
     Dates: start: 20210607, end: 20210607
  4. DIAZEPAM [Suspect]
     Active Substance: DIAZEPAM
     Dosage: 50 MG
     Route: 048
     Dates: start: 20210607, end: 20210607
  5. LEVOTHYROXINE SODIUM [Suspect]
     Active Substance: LEVOTHYROXINE SODIUM
     Dosage: 2.8 MG
     Route: 048
     Dates: start: 20210607, end: 20210607

REACTIONS (4)
  - Vomiting [Unknown]
  - Intentional overdose [Unknown]
  - Somnolence [Unknown]
  - Suicide attempt [Unknown]

NARRATIVE: CASE EVENT DATE: 20210607
